FAERS Safety Report 23876943 (Version 3)
Quarter: 2024Q3

REPORT INFORMATION
  Report Type: Spontaneous
  Country: US (occurrence: US)
  Receive Date: 20240521
  Receipt Date: 20240921
  Transmission Date: 20241017
  Serious: No
  Sender: LUPIN
  Company Number: US-LUPIN PHARMACEUTICALS INC.-2024-03982

PATIENT

DRUGS (2)
  1. BROMFENAC [Suspect]
     Active Substance: BROMFENAC
     Indication: Open angle glaucoma
     Dosage: 1 DROP, BID (BOTH EYES TWICE A DAY)
     Route: 047
     Dates: start: 20240129
  2. BROMFENAC [Suspect]
     Active Substance: BROMFENAC
     Dosage: 1 DROP, BID (BOTH EYES TWICE A DAY)
     Route: 047

REACTIONS (3)
  - Drug dose omission by device [Unknown]
  - Product packaging quantity issue [Unknown]
  - No adverse event [Unknown]
